FAERS Safety Report 19990107 (Version 1)
Quarter: 2021Q4

REPORT INFORMATION
  Report Type: Spontaneous
  Country: US (occurrence: US)
  Receive Date: 20211025
  Receipt Date: 20211025
  Transmission Date: 20220303
  Serious: No
  Sender: FDA-Public Use
  Company Number: US-BIOGEN-2019BI00789409

PATIENT
  Sex: Male

DRUGS (5)
  1. TECFIDERA [Suspect]
     Active Substance: DIMETHYL FUMARATE
     Indication: Multiple sclerosis
     Route: 048
     Dates: start: 20190918
  2. TECFIDERA [Suspect]
     Active Substance: DIMETHYL FUMARATE
     Dosage: TOOK THIS DOSE FOR 14 DAYS
     Route: 065
     Dates: start: 20190919, end: 20191002
  3. TECFIDERA [Suspect]
     Active Substance: DIMETHYL FUMARATE
     Dosage: TO TAKE THIS DOSE FOR 14 DAYS
     Route: 065
     Dates: start: 20191003
  4. TECFIDERA [Suspect]
     Active Substance: DIMETHYL FUMARATE
     Route: 065
     Dates: start: 20191006
  5. TECFIDERA [Suspect]
     Active Substance: DIMETHYL FUMARATE
     Route: 065
     Dates: start: 20191017, end: 20210719

REACTIONS (7)
  - Gastrointestinal infection [Recovered/Resolved]
  - Fatigue [Unknown]
  - Dry mouth [Unknown]
  - Multiple sclerosis relapse [Recovered/Resolved]
  - Hot flush [Not Recovered/Not Resolved]
  - Abdominal discomfort [Unknown]
  - Flushing [Unknown]
